FAERS Safety Report 6643106-9 (Version None)
Quarter: 2010Q1

REPORT INFORMATION
  Report Type: 
  Country: None (occurrence: None)
  Receive Date: 20100319
  Receipt Date: 20100308
  Transmission Date: 20100710
  Serious: Yes (Hospitalization, Other)
  Sender: FDA-Public Use
  Company Number: PHHY2010CN15574

PATIENT
  Age: 35 Year
  Sex: Female

DRUGS (9)
  1. CYCLOSPORINE [Suspect]
     Indication: RENAL TRANSPLANT
     Dosage: 175 MG, QD
     Dates: start: 20060601
  2. AZATHIOPRINE [Suspect]
     Indication: RENAL TRANSPLANT
     Dosage: UNK
     Dates: start: 20060601
  3. PREDNISONE [Suspect]
     Indication: RENAL TRANSPLANT
     Dosage: 10 MG /DAY
  4. BENAZEPRIL HYDROCHLORIDE [Concomitant]
  5. NIFEDIPINE [Concomitant]
     Indication: HYPERTENSION
     Dosage: 10 MG, TID
  6. NIFEDIPINE [Concomitant]
     Dosage: 30 MG, Q12H
  7. LABETALOL HYDROCHLORIDE [Concomitant]
     Indication: HYPERTENSION
     Dosage: 100 MG, TID
  8. LABETALOL HYDROCHLORIDE [Concomitant]
     Dosage: 150 MG, Q6H
  9. NIFEDIPINE [Concomitant]
     Indication: HYPERTENSION
     Dosage: 30 MG, QD
     Route: 048

REACTIONS (10)
  - ARTERIOSCLEROSIS [None]
  - ASCITES [None]
  - CAESAREAN SECTION [None]
  - DRUG EXPOSURE DURING PREGNANCY [None]
  - LIVER FUNCTION TEST ABNORMAL [None]
  - OEDEMA PERIPHERAL [None]
  - PRE-ECLAMPSIA [None]
  - PREMATURE LABOUR [None]
  - PROTEINURIA [None]
  - RENAL IMPAIRMENT [None]
